FAERS Safety Report 6553385-4 (Version None)
Quarter: 2010Q1

REPORT INFORMATION
  Report Type: 
  Country: None (occurrence: None)
  Receive Date: 20100127
  Receipt Date: 20090914
  Transmission Date: 20100710
  Serious: No
  Sender: FDA-Public Use
  Company Number: A0807239A

PATIENT

DRUGS (1)
  1. IMITREX [Suspect]
     Indication: MIGRAINE
     Route: 030
     Dates: start: 20090914, end: 20090914

REACTIONS (1)
  - INCORRECT ROUTE OF DRUG ADMINISTRATION [None]
